FAERS Safety Report 6081029-7 (Version None)
Quarter: 2009Q1

REPORT INFORMATION
  Report Type: 
  Country: None (occurrence: None)
  Receive Date: 20090217
  Receipt Date: 20090209
  Transmission Date: 20090719
  Serious: Yes (Other)
  Sender: FDA-Public Use
  Company Number: PHEH2006US10879

PATIENT
  Sex: Male
  Weight: 83.9 kg

DRUGS (9)
  1. ZOMETA [Suspect]
  2. LOPRESSOR [Concomitant]
     Dosage: 25 MG, QD
  3. IMDUR [Concomitant]
     Dosage: 30 MG, QD
  4. METOPROLOL TARTRATE [Concomitant]
     Dosage: 50 MG, UNK
  5. FAMOTIDINE [Concomitant]
     Dosage: 20 MG, UNK
  6. DIAZEPAM [Concomitant]
     Dosage: 5 MG, UNK
  7. TEMAZEPAM [Concomitant]
     Dosage: 15 MG, UNK
  8. CALCIUM CHLORIDE [Concomitant]
  9. PLAVIX [Concomitant]
     Dosage: 75 MG, QD

REACTIONS (4)
  - ANXIETY [None]
  - INJURY [None]
  - OSTEONECROSIS [None]
  - PAIN [None]
